FAERS Safety Report 12904564 (Version 2)
Quarter: 2016Q4

REPORT INFORMATION
  Report Type: Spontaneous
  Country: US (occurrence: US)
  Receive Date: 20161102
  Receipt Date: 20161220
  Transmission Date: 20170207
  Serious: No
  Sender: FDA-Public Use
  Company Number: US-ASTRAZENECA-2016SF13818

PATIENT
  Age: 46 Year
  Sex: Male

DRUGS (5)
  1. NORTRIPTYLINE [Suspect]
     Active Substance: NORTRIPTYLINE
     Dosage: 50.0MG UNKNOWN
     Route: 065
  2. ACYCLOVIR. [Suspect]
     Active Substance: ACYCLOVIR
     Dosage: 200.0MG UNKNOWN
     Route: 065
  3. ZOVIRAX [Suspect]
     Active Substance: ACYCLOVIR
     Route: 065
  4. NEXIUM 24HR [Suspect]
     Active Substance: ESOMEPRAZOLE MAGNESIUM
     Route: 048
  5. TEMAZEPAM. [Suspect]
     Active Substance: TEMAZEPAM
     Dosage: 50
     Route: 065

REACTIONS (9)
  - Irritability [Recovered/Resolved]
  - Wrong drug administered [Unknown]
  - Condition aggravated [Unknown]
  - Dizziness [Recovered/Resolved]
  - Drug ineffective [Unknown]
  - Vomiting [Recovered/Resolved]
  - Dyspepsia [Unknown]
  - Nausea [Recovered/Resolved]
  - Product commingling [Unknown]

NARRATIVE: CASE EVENT DATE: 2016
